FAERS Safety Report 17911761 (Version 3)
Quarter: 2021Q3

REPORT INFORMATION
  Report Type: Spontaneous
  Country: FR (occurrence: FR)
  Receive Date: 20200618
  Receipt Date: 20210705
  Transmission Date: 20211014
  Serious: Yes (Hospitalization, Other)
  Sender: FDA-Public Use
  Company Number: NVSC2020FR169168

PATIENT
  Sex: Male
  Weight: 47 kg

DRUGS (13)
  1. CORTANCYL [Concomitant]
     Active Substance: PREDNISONE
     Indication: IMMUNOSUPPRESSION
     Dosage: 20 UNK, QD
     Route: 065
     Dates: start: 20130304, end: 20160306
  2. CORTANCYL [Concomitant]
     Active Substance: PREDNISONE
     Dosage: 5 UNK, QD
     Route: 065
     Dates: start: 20170207, end: 20191009
  3. TACROLIMUS. [Suspect]
     Active Substance: TACROLIMUS
     Indication: IMMUNOSUPPRESSION
     Dosage: 12 MG,QD
     Route: 048
     Dates: start: 20180906
  4. CORTANCYL [Concomitant]
     Active Substance: PREDNISONE
     Dosage: 10 UNK, QD
     Route: 065
     Dates: start: 20160320, end: 20170122
  5. CORTANCYL [Concomitant]
     Active Substance: PREDNISONE
     Dosage: 7.5 UNK, QD
     Route: 065
     Dates: start: 20170123, end: 20170206
  6. CELLCEPT [Concomitant]
     Active Substance: MYCOPHENOLATE MOFETIL\MYCOPHENOLATE MOFETIL HYDROCHLORIDE
     Indication: IMMUNOSUPPRESSION
     Dosage: 2000 UNK, QD
     Route: 065
     Dates: start: 20160304, end: 20160525
  7. CORTANCYL [Concomitant]
     Active Substance: PREDNISONE
     Dosage: 15 UNK, QD
     Route: 065
     Dates: start: 20160307, end: 20160319
  8. CORTANCYL [Concomitant]
     Active Substance: PREDNISONE
     Dosage: 10 UNK, QD
     Route: 065
     Dates: start: 20191010
  9. SOLU?MEDROL [Concomitant]
     Active Substance: METHYLPREDNISOLONE SODIUM SUCCINATE
     Dosage: 500 UNK, QD
     Route: 065
     Dates: start: 20191008, end: 20191008
  10. SOLU?MEDROL [Concomitant]
     Active Substance: METHYLPREDNISOLONE SODIUM SUCCINATE
     Indication: PRODUCT USED FOR UNKNOWN INDICATION
     Dosage: 500 UNK, QD
     Route: 065
     Dates: start: 20191007, end: 20191007
  11. SOLU?MEDROL [Concomitant]
     Active Substance: METHYLPREDNISOLONE SODIUM SUCCINATE
     Dosage: 500 UNK, QD
     Route: 065
     Dates: start: 20191009, end: 20191009
  12. TACROLIMUS. [Suspect]
     Active Substance: TACROLIMUS
     Dosage: 14 MG, QD
     Route: 048
     Dates: start: 20190901
  13. CELLCEPT [Concomitant]
     Active Substance: MYCOPHENOLATE MOFETIL\MYCOPHENOLATE MOFETIL HYDROCHLORIDE
     Dosage: 750 UNK, QD
     Route: 065
     Dates: start: 20160526, end: 20200120

REACTIONS (5)
  - Tubulointerstitial nephritis [Not Recovered/Not Resolved]
  - Transplant rejection [Not Recovered/Not Resolved]
  - Viral infection [Recovered/Resolved]
  - Acute kidney injury [Not Recovered/Not Resolved]
  - Renal impairment [Not Recovered/Not Resolved]

NARRATIVE: CASE EVENT DATE: 201908
